FAERS Safety Report 18756627 (Version 3)
Quarter: 2021Q1

REPORT INFORMATION
  Report Type: Report from Study
  Country: None (occurrence: CA)
  Receive Date: 20210119
  Receipt Date: 20210210
  Transmission Date: 20210419
  Serious: Yes (Hospitalization)
  Sender: FDA-Public Use
  Company Number: CA-ABBVIE-21K-028-3734733-00

PATIENT
  Sex: Female

DRUGS (1)
  1. MAVIRET [Suspect]
     Active Substance: GLECAPREVIR\PIBRENTASVIR
     Indication: CHRONIC HEPATITIS C
     Route: 048
     Dates: start: 20201110, end: 20210105

REACTIONS (4)
  - Type 1 diabetes mellitus [Unknown]
  - Blood glucose increased [Recovered/Resolved]
  - Type 1 diabetes mellitus [Recovered/Resolved]
  - Blood glucose increased [Unknown]
